FAERS Safety Report 6865666-5 (Version None)
Quarter: 2010Q3

REPORT INFORMATION
  Report Type: 
  Country: None (occurrence: None)
  Receive Date: 20100721
  Receipt Date: 20080430
  Transmission Date: 20110219
  Serious: No
  Sender: FDA-Public Use
  Company Number: US-PFIZER INC-2008038497

PATIENT
  Sex: Female
  Weight: 111.4 kg

DRUGS (7)
  1. CHANTIX [Suspect]
     Indication: SMOKING CESSATION THERAPY
     Dates: start: 20080401
  2. OXYBUTYNIN CHLORIDE [Concomitant]
  3. EFFEXOR [Concomitant]
  4. ABILIFY [Concomitant]
  5. LEVOTHYROXINE SODIUM [Concomitant]
  6. LITHIUM [Concomitant]
  7. PREVACID [Concomitant]

REACTIONS (2)
  - MIDDLE INSOMNIA [None]
  - NAUSEA [None]
